FAERS Safety Report 4341168-5 (Version None)
Quarter: 2004Q2

REPORT INFORMATION
  Report Type: 
  Country: None (occurrence: None)
  Receive Date: 20040413
  Receipt Date: 20040329
  Transmission Date: 20050107
  Serious: Yes (Hospitalization)
  Sender: FDA-Public Use
  Company Number: 2002-CN-00301CN

PATIENT
  Age: 68 Year
  Sex: Female

DRUGS (4)
  1. TIOTROPIUM BROMIDE HANDIHALER DPI (KAI) (TIOTROPIUM) [Suspect]
     Indication: CHRONIC OBSTRUCTIVE AIRWAYS DISEASE
     Dosage: 1 PUF (NR, 1 PUFF EVERY AM); IH
     Route: 055
     Dates: start: 20021016, end: 20021023
  2. ADVAIR (NR) [Concomitant]
  3. THEODUR (TA) [Concomitant]
  4. AIROMIR (NR) [Concomitant]

REACTIONS (4)
  - AGITATION [None]
  - CHRONIC OBSTRUCTIVE AIRWAYS DISEASE EXACERBATED [None]
  - NEPHROLITHIASIS [None]
  - RENAL COLIC [None]
